FAERS Safety Report 15006537 (Version 1)
Quarter: 2018Q2

REPORT INFORMATION
  Report Type: Report from Study
  Country: US (occurrence: US)
  Receive Date: 20180613
  Receipt Date: 20180613
  Transmission Date: 20180711
  Serious: No
  Sender: FDA-Public Use
  Company Number: US-US WORLDMEDS, LLC-USW201708-001206

PATIENT
  Age: 71 Year
  Sex: Female
  Weight: 62.59 kg

DRUGS (8)
  1. TIGAN [Suspect]
     Active Substance: TRIMETHOBENZAMIDE HYDROCHLORIDE
     Indication: NAUSEA
     Dates: start: 20170813, end: 20171002
  2. ENTACAPONE. [Concomitant]
     Active Substance: ENTACAPONE
  3. APOKYN [Suspect]
     Active Substance: APOMORPHINE HYDROCHLORIDE
     Indication: DYSKINESIA
     Dates: start: 20170816
  4. NEUPRO [Concomitant]
     Active Substance: ROTIGOTINE
     Indication: PARKINSON^S DISEASE
  5. CARBO/LEVODOPA [Concomitant]
     Indication: PARKINSON^S DISEASE
  6. CARBO/LEVODOPA [Concomitant]
  7. CITALOPRAM [Concomitant]
     Active Substance: CITALOPRAM HYDROBROMIDE
     Indication: ANXIETY
  8. APOKYN [Suspect]
     Active Substance: APOMORPHINE HYDROCHLORIDE
     Indication: ON AND OFF PHENOMENON
     Route: 058
     Dates: start: 20170816, end: 20171002

REACTIONS (6)
  - Hypertension [Recovered/Resolved]
  - Yawning [Recovered/Resolved]
  - Vomiting [Recovered/Resolved]
  - Nausea [Recovered/Resolved]
  - Dysgeusia [Recovered/Resolved]
  - Somnolence [Recovered/Resolved]

NARRATIVE: CASE EVENT DATE: 20170816
